FAERS Safety Report 11189486 (Version 1)
Quarter: 2015Q2

REPORT INFORMATION
  Report Type: Spontaneous
  Country: JP (occurrence: JP)
  Receive Date: 20150615
  Receipt Date: 20150615
  Transmission Date: 20150821
  Serious: Yes (Death)
  Sender: FDA-Public Use
  Company Number: JP-TEVA-570091ISR

PATIENT
  Age: 75 Year
  Sex: Male
  Weight: 43 kg

DRUGS (5)
  1. E-FEN BUCCAL [Suspect]
     Active Substance: FENTANYL CITRATE
     Dosage: DAILY DOSE: 0MCG-200MCG. ONE TIME DOSE: 100MCG
     Route: 002
     Dates: start: 20150428, end: 20150519
  2. FENTOS [Concomitant]
     Active Substance: FENTANYL
     Indication: CANCER PAIN
     Dosage: 1 MILLIGRAM DAILY;
     Route: 062
     Dates: start: 20150425, end: 20150426
  3. E-FEN BUCCAL [Suspect]
     Active Substance: FENTANYL CITRATE
     Indication: BREAKTHROUGH PAIN
     Dosage: DAILY DOSE: 50MCG-100MCG. ONE TIME DOSE: 50MCG
     Route: 002
     Dates: start: 20150426, end: 20150427
  4. FENTOS [Concomitant]
     Active Substance: FENTANYL
     Dosage: 2 MILLIGRAM DAILY;
     Route: 062
     Dates: start: 20150427, end: 20150507
  5. RINDERON V [Concomitant]
     Active Substance: BETAMETHASONE VALERATE

REACTIONS (3)
  - Gastric cancer [Fatal]
  - Somnolence [Not Recovered/Not Resolved]
  - Constipation [Not Recovered/Not Resolved]

NARRATIVE: CASE EVENT DATE: 20150514
